FAERS Safety Report 8972598 (Version 3)
Quarter: 2013Q1

REPORT INFORMATION
  Report Type: Spontaneous
  Country: US (occurrence: US)
  Receive Date: 20121219
  Receipt Date: 20130308
  Transmission Date: 20140127
  Serious: No
  Sender: FDA-Public Use
  Company Number: US-BIOGENIDEC-2012BI059779

PATIENT
  Sex: Female

DRUGS (2)
  1. TYSABRI [Suspect]
     Indication: MULTIPLE SCLEROSIS
     Route: 042
     Dates: start: 20120423
  2. BENEDRYL [Concomitant]

REACTIONS (9)
  - Pain in extremity [Not Recovered/Not Resolved]
  - Fall [Recovered/Resolved]
  - Foot fracture [Recovered/Resolved]
  - Gait disturbance [Not Recovered/Not Resolved]
  - Diplegia [Recovered/Resolved]
  - Influenza [Not Recovered/Not Resolved]
  - Fatigue [Not Recovered/Not Resolved]
  - Drug ineffective [Recovered/Resolved]
  - Pyrexia [Recovered/Resolved]
